FAERS Safety Report 23191390 (Version 1)
Quarter: 2023Q4

REPORT INFORMATION
  Report Type: Report from Study
  Country: US (occurrence: US)
  Receive Date: 20231116
  Receipt Date: 20231116
  Transmission Date: 20240110
  Serious: Yes (Other)
  Sender: FDA-Public Use
  Company Number: US-MYLANLABS-2023M1121380

PATIENT
  Sex: Female

DRUGS (3)
  1. TORSEMIDE [Suspect]
     Active Substance: TORSEMIDE
     Indication: Pulmonary arterial hypertension
     Dosage: 18 MICROGRAM, QID
     Route: 055
     Dates: start: 2023
  2. TREPROSTINIL SODIUM [Concomitant]
     Active Substance: TREPROSTINIL SODIUM
     Indication: Oedema peripheral
     Dosage: 100 MILLIGRAM, BID (100 MG IN THE MORNING AND 100 MG AT 2 P.M) START DATE: ??-OCT-2023)
     Route: 065
  3. METOLAZONE [Concomitant]
     Active Substance: METOLAZONE
     Indication: Oedema peripheral
     Dosage: 5 MILLIGRAM, QD (START DATE: ??-OCT-2023)
     Route: 065

REACTIONS (9)
  - Blood sodium decreased [Unknown]
  - Pain in extremity [Unknown]
  - Paraesthesia [Unknown]
  - Dyspnoea [Unknown]
  - Fatigue [Unknown]
  - Polyuria [Unknown]
  - Oedema peripheral [Unknown]
  - Weight increased [Unknown]
  - Asthenia [Unknown]

NARRATIVE: CASE EVENT DATE: 20230101
